FAERS Safety Report 14054729 (Version 2)
Quarter: 2017Q4

REPORT INFORMATION
  Report Type: Report from Study
  Country: None (occurrence: US)
  Receive Date: 20171006
  Receipt Date: 20171030
  Transmission Date: 20180321
  Serious: Yes (Hospitalization)
  Sender: FDA-Public Use
  Company Number: US-ABBVIE-17K-163-1848357-00

PATIENT
  Age: 56 Year
  Sex: Female

DRUGS (2)
  1. HUMIRA [Suspect]
     Active Substance: ADALIMUMAB
     Indication: PSORIASIS
     Route: 058
     Dates: start: 20161215, end: 201701
  2. HUMIRA [Suspect]
     Active Substance: ADALIMUMAB
     Route: 058
     Dates: start: 2017, end: 201707

REACTIONS (11)
  - Animal bite [Unknown]
  - Ear infection [Unknown]
  - Psoriasis [Not Recovered/Not Resolved]
  - Chills [Recovering/Resolving]
  - Nasopharyngitis [Recovering/Resolving]
  - Staphylococcal infection [Not Recovered/Not Resolved]
  - Skin irritation [Unknown]
  - Immunodeficiency [Not Recovered/Not Resolved]
  - General physical condition abnormal [Unknown]
  - Pruritus [Unknown]
  - Pyrexia [Recovering/Resolving]

NARRATIVE: CASE EVENT DATE: 201612
